FAERS Safety Report 5085658-9 (Version None)
Quarter: 2006Q3

REPORT INFORMATION
  Report Type: 
  Country: None (occurrence: None)
  Receive Date: 20060822
  Receipt Date: 20060812
  Transmission Date: 20061208
  Serious: Yes (Hospitalization)
  Sender: FDA-Public Use
  Company Number: GB-JNJFOC-20060803616

PATIENT
  Age: 30 Year
  Sex: Male

DRUGS (2)
  1. ACETAMINOPHEN [Suspect]
  2. ACETAMINOPHEN [Suspect]
     Indication: DRUG USE FOR UNKNOWN INDICATION
     Dosage: DOSE, DOSAGE FORM, ROUTE, AND FREQUENCY UNKNOWN

REACTIONS (3)
  - HEPATIC FAILURE [None]
  - OVERDOSE [None]
  - RENAL IMPAIRMENT [None]
